FAERS Safety Report 20474510 (Version 2)
Quarter: 2022Q1

REPORT INFORMATION
  Report Type: Report from Study
  Country: JP (occurrence: JP)
  Receive Date: 20220215
  Receipt Date: 20220331
  Transmission Date: 20220423
  Serious: Yes (Hospitalization)
  Sender: FDA-Public Use
  Company Number: JP-CHUGAI-2022003142

PATIENT
  Age: 69 Year
  Sex: Male
  Weight: 60 kg

DRUGS (15)
  1. TOCILIZUMAB [Suspect]
     Active Substance: TOCILIZUMAB
     Indication: Granulomatosis with polyangiitis
     Dosage: DOSE: 8 ML/KG
     Route: 042
     Dates: start: 20211229, end: 20220126
  2. VONOPRAZAN FUMARATE [Suspect]
     Active Substance: VONOPRAZAN FUMARATE
     Indication: Prophylaxis
     Route: 048
     Dates: start: 20211229, end: 20220119
  3. SULFAMETHOXAZOLE\TRIMETHOPRIM [Suspect]
     Active Substance: SULFAMETHOXAZOLE\TRIMETHOPRIM
     Indication: Prophylaxis
     Dosage: 1 DOSAGE FORM, QD
     Route: 048
     Dates: start: 20211229
  4. PREDNISOLONE [Suspect]
     Active Substance: PREDNISOLONE
     Indication: Granulomatosis with polyangiitis
     Dosage: 20MG-20MG-10MG, TID
     Route: 048
     Dates: start: 20211229
  5. BENIDIPINE HYDROCHLORIDE [Concomitant]
     Active Substance: BENIDIPINE HYDROCHLORIDE
     Indication: Hypertension
     Dosage: 8 MILLIGRAM, BID
     Route: 048
  6. ENALAPRIL MALEATE [Concomitant]
     Active Substance: ENALAPRIL MALEATE
     Indication: Hypertension
     Dosage: 2.5 MILLIGRAM, QD
     Route: 048
  7. URSODIOL [Concomitant]
     Active Substance: URSODIOL
     Indication: Prophylaxis
     Dosage: 300 MILLIGRAM, TID
     Route: 048
     Dates: end: 20220119
  8. FUROSEMIDE [Concomitant]
     Active Substance: FUROSEMIDE
     Indication: Granulomatosis with polyangiitis
     Dosage: 20 MILLIGRAM, QD
     Route: 048
     Dates: end: 20220124
  9. GLYCOPYRRONIUM\INDACATEROL [Concomitant]
     Active Substance: GLYCOPYRRONIUM\INDACATEROL
     Indication: Interstitial lung disease
     Dosage: 1 DOSAGE FORM, QD
     Route: 055
  10. ELDECALCITOL [Concomitant]
     Active Substance: ELDECALCITOL
     Indication: Prophylaxis
     Dosage: 1 DOSAGE FORM, QD
     Route: 048
     Dates: start: 20211229
  11. HYALURONATE SODIUM [Concomitant]
     Active Substance: HYALURONATE SODIUM
     Indication: Granulomatosis with polyangiitis
     Dosage: PROPER DOSE, PRN
     Route: 047
     Dates: start: 20211222
  12. FLUOROMETHOLONE [Concomitant]
     Active Substance: FLUOROMETHOLONE
     Indication: Granulomatosis with polyangiitis
     Dosage: PROPER DOSE, PRN
     Route: 047
     Dates: start: 20211222
  13. DEXAMETHASONE [Concomitant]
     Active Substance: DEXAMETHASONE
     Indication: Granulomatosis with polyangiitis
     Dosage: PROPER DOSE, PRN
     Route: 047
     Dates: start: 20211222
  14. LEVOFLOXACIN HEMIHYDRATE [Concomitant]
     Active Substance: LEVOFLOXACIN
     Indication: Granulomatosis with polyangiitis
     Dosage: PROPER DOSE, PRN
     Route: 047
     Dates: start: 20211222
  15. ALENDRONATE [Concomitant]
     Active Substance: ALENDRONATE SODIUM
     Route: 048
     Dates: start: 20220113

REACTIONS (1)
  - Hepatic cirrhosis [Not Recovered/Not Resolved]

NARRATIVE: CASE EVENT DATE: 20220115
